FAERS Safety Report 14903772 (Version 4)
Quarter: 2018Q2

REPORT INFORMATION
  Report Type: Spontaneous
  Country: US (occurrence: US)
  Receive Date: 20180516
  Receipt Date: 20180605
  Transmission Date: 20180711
  Serious: Yes (Other)
  Sender: FDA-Public Use
  Company Number: US-009507513-1805USA003038

PATIENT
  Age: 55 Year
  Sex: Male

DRUGS (4)
  1. ALBUTEROL. [Concomitant]
     Active Substance: ALBUTEROL
  2. PROVENTIL [Suspect]
     Active Substance: ALBUTEROL
     Indication: PROPHYLAXIS AGAINST BRONCHOSPASM
  3. SPIRIVA [Concomitant]
     Active Substance: TIOTROPIUM BROMIDE MONOHYDRATE
  4. PROVENTIL [Suspect]
     Active Substance: ALBUTEROL
     Indication: BRONCHOSPASM
     Dosage: UNK
     Dates: start: 2008

REACTIONS (3)
  - Dyspnoea [Not Recovered/Not Resolved]
  - Product quality issue [Not Recovered/Not Resolved]
  - Drug dose omission [Unknown]

NARRATIVE: CASE EVENT DATE: 20180504
